FAERS Safety Report 6780514-X (Version None)
Quarter: 2010Q2

REPORT INFORMATION
  Report Type: 
  Country: None (occurrence: None)
  Receive Date: 20100621
  Receipt Date: 20100609
  Transmission Date: 20101027
  Serious: No
  Sender: FDA-Public Use
  Company Number: US-BIOGENIDEC-2010BI019634

PATIENT
  Age: 58 Year
  Sex: Female

DRUGS (6)
  1. TYSABRI [Suspect]
     Indication: MULTIPLE SCLEROSIS
     Route: 042
     Dates: start: 20070130, end: 20100201
  2. AVONEX [Concomitant]
     Indication: MULTIPLE SCLEROSIS
     Route: 030
  3. CYMBALTA [Concomitant]
     Dates: end: 20100501
  4. PROVIGIL [Concomitant]
     Dates: end: 20100501
  5. HIPREX [Concomitant]
     Dates: end: 20100501
  6. PRILOSEC [Concomitant]
     Dates: end: 20100501

REACTIONS (3)
  - ABDOMINAL DISTENSION [None]
  - FEELING ABNORMAL [None]
  - WEIGHT INCREASED [None]
